FAERS Safety Report 19420946 (Version 11)
Quarter: 2022Q3

REPORT INFORMATION
  Report Type: Report from Study
  Country: CO (occurrence: CO)
  Receive Date: 20210615
  Receipt Date: 20220808
  Transmission Date: 20221027
  Serious: Yes (Hospitalization, Other)
  Sender: FDA-Public Use
  Company Number: NVSC2021CO132812

PATIENT
  Age: 35 Year
  Sex: Male
  Weight: 85 kg

DRUGS (23)
  1. ELTROMBOPAG OLAMINE [Suspect]
     Active Substance: ELTROMBOPAG OLAMINE
     Indication: Aplastic anaemia
     Dosage: 75 MG, QD
     Route: 048
     Dates: start: 202005
  2. ELTROMBOPAG OLAMINE [Suspect]
     Active Substance: ELTROMBOPAG OLAMINE
     Dosage: 150 MG DOSE (25 MG TABLET)
     Route: 048
     Dates: start: 202103
  3. ELTROMBOPAG OLAMINE [Suspect]
     Active Substance: ELTROMBOPAG OLAMINE
     Dosage: 75 MG (25 MG TABLET), QD
     Route: 048
  4. ELTROMBOPAG OLAMINE [Suspect]
     Active Substance: ELTROMBOPAG OLAMINE
     Dosage: 100 MG, QD (24 HOURS)
     Route: 048
  5. ELTROMBOPAG OLAMINE [Suspect]
     Active Substance: ELTROMBOPAG OLAMINE
     Dosage: UNK
     Route: 048
  6. ELTROMBOPAG OLAMINE [Suspect]
     Active Substance: ELTROMBOPAG OLAMINE
     Dosage: 150 MG, QD (EVERY 24 HOURS) FIRST 45 DAYS
     Route: 048
  7. ELTROMBOPAG OLAMINE [Suspect]
     Active Substance: ELTROMBOPAG OLAMINE
     Dosage: 100 MG, QD (EVERY 24 HOURS) DURING 4 MONTHS
     Route: 048
  8. ELTROMBOPAG OLAMINE [Suspect]
     Active Substance: ELTROMBOPAG OLAMINE
     Dosage: 75 MG, QD  (EVERY 24 HOURS) 3 MONTHS
     Route: 048
  9. ELTROMBOPAG OLAMINE [Suspect]
     Active Substance: ELTROMBOPAG OLAMINE
     Dosage: 100 MG, QD (EVERY 24 HOURS)
     Route: 048
  10. ELTROMBOPAG OLAMINE [Suspect]
     Active Substance: ELTROMBOPAG OLAMINE
     Dosage: 75 MG, QD (EVERY 24 HOURS) 7 MONTHS AGO STARTED
     Route: 065
  11. ELTROMBOPAG OLAMINE [Suspect]
     Active Substance: ELTROMBOPAG OLAMINE
     Dosage: 75 MG, QD (EVERY 24 HOURS) A YEAR AND A HALF AGO STARTED
     Route: 065
  12. ELTROMBOPAG OLAMINE [Suspect]
     Active Substance: ELTROMBOPAG OLAMINE
     Dosage: 75 MG, QD (EVERY 24 HOURS) MORE THAN ONE YEAR AND A HALF
     Route: 048
  13. ELTROMBOPAG OLAMINE [Suspect]
     Active Substance: ELTROMBOPAG OLAMINE
     Dosage: 75 MG, QD (EVERY 24 HOUR)
     Route: 048
     Dates: start: 20220803
  14. CYCLOSPORINE [Suspect]
     Active Substance: CYCLOSPORINE
     Indication: Aplastic anaemia
     Dosage: 100 MG, BID (EVERY 12 HOURS)
     Route: 048
     Dates: start: 202103
  15. CYCLOSPORINE [Suspect]
     Active Substance: CYCLOSPORINE
     Dosage: 100 MG, QD
     Route: 048
  16. CYCLOSPORINE [Suspect]
     Active Substance: CYCLOSPORINE
     Dosage: 1.5 MG, Q12H
     Route: 065
  17. ACYCLOVIR [Concomitant]
     Active Substance: ACYCLOVIR
     Indication: Aplastic anaemia
     Dosage: 200 MG, BID (EVERY 12 HOURS)
     Route: 048
     Dates: start: 202103
  18. TRIMETHOPRIM [Concomitant]
     Active Substance: TRIMETHOPRIM
     Indication: Aplastic anaemia
     Dosage: UNK UNK, QD (ONCE DAILY/MONDAY, WEDNESDAY AND FRIDAYS)
     Route: 048
     Dates: start: 202103
  19. ERYTHROPOIETIN [Concomitant]
     Active Substance: ERYTHROPOIETIN
     Indication: Aplastic anaemia
     Dosage: 30000 UL/0.6 ML QW
     Route: 058
     Dates: start: 202103
  20. ERYTHROPOIETIN [Concomitant]
     Active Substance: ERYTHROPOIETIN
     Indication: Haemoglobin
     Dosage: 30000 UL, QD
     Route: 042
  21. ERYTHROPOIETIN [Concomitant]
     Active Substance: ERYTHROPOIETIN
     Dosage: UNK (EVERY 8 DAY)
     Route: 058
  22. FOLIC ACID [Concomitant]
     Active Substance: FOLIC ACID
     Indication: Aplastic anaemia
     Dosage: 5 MG, QD
     Route: 048
     Dates: start: 202103
  23. OMEPRAZOLE [Concomitant]
     Active Substance: OMEPRAZOLE
     Indication: Gastritis
     Dosage: UNK UNK, QD
     Route: 048
     Dates: start: 202103

REACTIONS (18)
  - Platelet count decreased [Unknown]
  - SARS-CoV-2 test positive [Recovering/Resolving]
  - Malaise [Unknown]
  - Pain in extremity [Recovered/Resolved]
  - Headache [Recovered/Resolved]
  - Anxiety [Unknown]
  - Influenza [Recovering/Resolving]
  - Discomfort [Recovering/Resolving]
  - Nasopharyngitis [Recovering/Resolving]
  - Ill-defined disorder [Unknown]
  - Chills [Unknown]
  - Pyrexia [Unknown]
  - Haemoglobin decreased [Unknown]
  - Dizziness [Not Recovered/Not Resolved]
  - Headache [Not Recovered/Not Resolved]
  - Fatigue [Not Recovered/Not Resolved]
  - Product use in unapproved indication [Unknown]
  - Product dose omission issue [Unknown]

NARRATIVE: CASE EVENT DATE: 20210301
